FAERS Safety Report 8561449 (Version 2)
Quarter: 2012Q4

REPORT INFORMATION
  Report Type: 
  Country: PT (occurrence: PT)
  Receive Date: 20120515
  Receipt Date: 20121012
  Transmission Date: 20130627
  Serious: Yes (Hospitalization)
  Sender: FDA-Public Use
  Company Number: PHHY2012PT039482

PATIENT
  Age: 34 Month
  Sex: Female

DRUGS (7)
  1. PENICILLIN G SODIUM [Suspect]
     Indication: LYME DISEASE
  2. FLUCLOXACILLIN [Concomitant]
     Indication: PYREXIA
  3. FLUCLOXACILLIN [Concomitant]
     Indication: ODYNOPHAGIA
  4. AMOXICILLIN [Concomitant]
     Indication: PYREXIA
  5. AMOXICILLIN [Concomitant]
     Indication: ODYNOPHAGIA
  6. CEFACLOR [Concomitant]
  7. CLINDAMYCIN [Concomitant]

REACTIONS (13)
  - Drug reaction with eosinophilia and systemic symptoms [Recovered/Resolved]
  - Rash [Recovered/Resolved]
  - Oedema peripheral [Recovered/Resolved]
  - Erythema migrans [Recovered/Resolved]
  - Injection site nodule [Recovered/Resolved]
  - Pyrexia [Recovered/Resolved]
  - General physical health deterioration [Recovered/Resolved]
  - Leukocytosis [Recovered/Resolved]
  - Eosinophilia [Recovered/Resolved]
  - Parvovirus B19 test positive [Unknown]
  - Epstein-Barr virus test positive [Unknown]
  - Human herpes virus 6 serology positive [Unknown]
  - Type IV hypersensitivity reaction [Recovered/Resolved]
